FAERS Safety Report 4666753-2 (Version None)
Quarter: 2005Q2

REPORT INFORMATION
  Report Type: 
  Country: None (occurrence: None)
  Receive Date: 20050503
  Receipt Date: 20050419
  Transmission Date: 20051028
  Serious: Yes (Hospitalization, Disabling)
  Sender: FDA-Public Use
  Company Number: HQWYE299723MAR05

PATIENT
  Age: 73 Year
  Sex: Male
  Weight: 94 kg

DRUGS (6)
  1. BENEFIX [Suspect]
     Indication: HAEMORRHAGE
     Dosage: SEE IMAGE
     Route: 042
     Dates: start: 20040210, end: 20040210
  2. BENEFIX [Suspect]
     Indication: HAEMORRHAGE
     Dosage: SEE IMAGE
     Route: 042
     Dates: start: 20040219, end: 20040219
  3. BENEFIX [Suspect]
     Indication: HAEMORRHAGE
     Dosage: SEE IMAGE
     Route: 042
     Dates: start: 20040220, end: 20040221
  4. BENEFIX [Suspect]
  5. BENEFIX [Suspect]
  6. BENEFIX [Suspect]

REACTIONS (5)
  - ABASIA [None]
  - ACTIVITIES OF DAILY LIVING IMPAIRED [None]
  - DRUG INEFFECTIVE [None]
  - MUSCLE HAEMORRHAGE [None]
  - RETROPERITONEAL HAEMATOMA [None]
